FAERS Safety Report 5088192-5 (Version None)
Quarter: 2006Q3

REPORT INFORMATION
  Report Type: 
  Country: None (occurrence: None)
  Receive Date: 20060727
  Receipt Date: 20060622
  Transmission Date: 20061208
  Serious: Yes (Other)
  Sender: FDA-Public Use
  Company Number: 2006079279

PATIENT
  Age: 69 Year
  Sex: Female

DRUGS (3)
  1. LYRICA [Suspect]
     Indication: NEURALGIA
     Dosage: 300 MG (150 MG 2 IN 1 D)
     Route: 065
  2. ASTELIN (AZELASTINE HYDROCYDROCHLORIDE) [Concomitant]
  3. AEROHIST (CHLORPHENAMINE MALEATE, HYOSCINE METHONITRATE) [Concomitant]

REACTIONS (2)
  - FEELING ABNORMAL [None]
  - MEMORY IMPAIRMENT [None]
